FAERS Safety Report 9704227 (Version 1)
Quarter: 2013Q4

REPORT INFORMATION
  Report Type: Spontaneous
  Country: US (occurrence: US)
  Receive Date: 20131122
  Receipt Date: 20131122
  Transmission Date: 20140711
  Serious: Yes (Other)
  Sender: FDA-Public Use
  Company Number: US-TEVA-445998USA

PATIENT
  Sex: Female

DRUGS (2)
  1. CARBAMAZEPINE [Suspect]
     Route: 048
  2. HYDROCHLOROTHIAZIDE [Suspect]
     Route: 048

REACTIONS (6)
  - Systemic lupus erythematosus [Unknown]
  - Cutaneous lupus erythematosus [Unknown]
  - Dizziness [Recovered/Resolved]
  - Dizziness [Recovered/Resolved]
  - Disturbance in attention [Recovered/Resolved]
  - Balance disorder [Recovered/Resolved]
